FAERS Safety Report 7057589-6 (Version None)
Quarter: 2010Q4

REPORT INFORMATION
  Report Type: 
  Country: None (occurrence: None)
  Receive Date: 20101022
  Receipt Date: 20101015
  Transmission Date: 20110411
  Serious: Yes (Death)
  Sender: FDA-Public Use
  Company Number: US-JNJCH-2007332486

PATIENT
  Age: 5 Month
  Sex: Male

DRUGS (7)
  1. ACETAMINOPHEN [Suspect]
     Dosage: TEXT:1 DOSE
     Route: 048
  2. PSEUDOEPHEDRINE HCL [Suspect]
     Dosage: TEXT:1 DOSE
     Route: 048
  3. DEXTROMETHORPHAN [Suspect]
     Dosage: TEXT:1 DOSE
     Route: 048
  4. EPHEDRINE SUL CAP [Suspect]
     Indication: NASAL CONGESTION
     Dosage: TEXT:1 DOSE
     Route: 048
  5. CARBINOXAMINE MALEATE [Suspect]
     Dosage: TEXT:1 DOSE
     Route: 048
  6. METOCLOPRAMIDE [Suspect]
     Dosage: TEXT:1 DOSE
     Route: 048
  7. ANTIBIOTICS [Concomitant]
     Dosage: TEXT:UNSPECIFIED
     Route: 065

REACTIONS (5)
  - DRUG SCREEN POSITIVE [None]
  - DRUG TOXICITY [None]
  - LOSS OF CONSCIOUSNESS [None]
  - OTORRHOEA [None]
  - PULMONARY CONGESTION [None]
